FAERS Safety Report 9668465 (Version 2)
Quarter: 2013Q4

REPORT INFORMATION
  Report Type: Spontaneous
  Country: GB (occurrence: GB)
  Receive Date: 20131105
  Receipt Date: 20131204
  Transmission Date: 20140711
  Serious: Yes (Death)
  Sender: FDA-Public Use
  Company Number: GB-ROCHE-1298553

PATIENT
  Age: 93 Year
  Sex: Female
  Weight: 60.65 kg

DRUGS (13)
  1. LUCENTIS [Suspect]
     Indication: PRODUCT USED FOR UNKNOWN INDICATION
     Route: 050
  2. SPIRONOLACTONE [Concomitant]
     Route: 065
     Dates: start: 2003
  3. BISOPROLOL [Concomitant]
     Route: 065
     Dates: start: 2003
  4. AMIODARONE [Concomitant]
     Route: 065
     Dates: start: 2003
  5. MONOMIL [Concomitant]
     Route: 065
     Dates: start: 2003
  6. IMDUR [Concomitant]
     Route: 065
  7. ADCAL-D3 [Concomitant]
     Route: 065
     Dates: start: 2003
  8. LANSOPRAZOLE [Concomitant]
     Route: 065
     Dates: start: 2003
  9. LEVOTHYROXINE SODIUM [Concomitant]
     Route: 065
     Dates: start: 2003
  10. RAMIPRIL [Concomitant]
     Route: 065
     Dates: start: 2003
  11. FUROSEMIDE [Concomitant]
     Route: 065
     Dates: start: 2003
  12. ATORVASTATIN [Concomitant]
     Route: 065
     Dates: start: 2003
  13. CLOPIDOGREL [Concomitant]
     Route: 065
     Dates: start: 2003

REACTIONS (4)
  - Cardiac failure [Fatal]
  - Hypertension [Fatal]
  - Myocardial ischaemia [Fatal]
  - Atrial fibrillation [Fatal]
